FAERS Safety Report 6171100-3 (Version None)
Quarter: 2009Q2

REPORT INFORMATION
  Report Type: 
  Country: None (occurrence: None)
  Receive Date: 20090429
  Receipt Date: 20090420
  Transmission Date: 20091009
  Serious: Yes (Other)
  Sender: FDA-Public Use
  Company Number: PHHY2009JP09671

PATIENT
  Sex: Male
  Weight: 54 kg

DRUGS (7)
  1. DIOVAN T30230+TAB+HY [Suspect]
     Dosage: 80 MG, QD
     Route: 048
     Dates: start: 20071208
  2. ADALAT CC [Concomitant]
     Indication: HYPERTENSION
     Dosage: 40MG
     Route: 048
     Dates: start: 20081008, end: 20081207
  3. NATRIX [Concomitant]
     Indication: HYPERTENSION
     Dosage: 2MG
     Route: 048
     Dates: start: 20080204, end: 20080531
  4. BUFFERIN [Concomitant]
     Dosage: 81MG
     Route: 048
     Dates: start: 20050323
  5. ZYLORIC [Concomitant]
     Dosage: 100MG
     Route: 048
     Dates: start: 20050615
  6. LENDORMIN [Concomitant]
     Dosage: 0.25MG
     Route: 048
     Dates: start: 20060516
  7. SPIRIVA [Concomitant]
     Dosage: 18UG
     Dates: start: 20070110

REACTIONS (3)
  - BLOOD CREATININE INCREASED [None]
  - MALIGNANT NEOPLASM PROGRESSION [None]
  - MALIGNANT TUMOUR EXCISION [None]
